FAERS Safety Report 5403403-1 (Version None)
Quarter: 2007Q3

REPORT INFORMATION
  Report Type: 
  Country: None (occurrence: None)
  Receive Date: 20070730
  Receipt Date: 20070710
  Transmission Date: 20080115
  Serious: Yes (Other)
  Sender: FDA-Public Use
  Company Number: 2007EU001487

PATIENT
  Age: 44 Year
  Sex: Male

DRUGS (2)
  1. PROGRAF [Suspect]
     Indication: DERMATITIS ATOPIC
  2. CORTISON (CORTISONE ACETATE) [Concomitant]

REACTIONS (1)
  - KAPOSI'S VARICELLIFORM ERUPTION [None]
